FAERS Safety Report 5340595-7 (Version None)
Quarter: 2007Q2

REPORT INFORMATION
  Report Type: 
  Country: None (occurrence: None)
  Receive Date: 20070531
  Receipt Date: 20070525
  Transmission Date: 20071010
  Serious: Yes (Other)
  Sender: FDA-Public Use
  Company Number: US-ASTRAZENECA-2007UW13027

PATIENT

DRUGS (1)
  1. ENTOCORT [Suspect]
     Route: 048

REACTIONS (1)
  - RETINAL HAEMORRHAGE [None]
